FAERS Safety Report 9833202 (Version 1)
Quarter: 2014Q1

REPORT INFORMATION
  Report Type: Spontaneous
  Country: US (occurrence: US)
  Receive Date: 20140121
  Receipt Date: 20140121
  Transmission Date: 20141002
  Serious: No
  Sender: FDA-Public Use
  Company Number: US-BAUSCH-BL-2013-001131

PATIENT
  Age: 59 Year
  Sex: Female
  Weight: 67.19 kg

DRUGS (6)
  1. ALAWAY (KETOTIFEN FUMARATE OPHTHALMIC SOLUTION) [Suspect]
     Indication: EYE PRURITUS
     Dosage: 1 DROP IN EACH EYE; ONCE DAILY;OPHTHALMIC
     Route: 047
     Dates: start: 2012, end: 2013
  2. TOPIRAMATE [Concomitant]
  3. BENAZEPRIL HYDROCHLORIDE/AMLODIPINE BESILATE [Concomitant]
  4. IBANDRONATE SODIUM [Concomitant]
  5. LOVASTATIN [Concomitant]
  6. CETIRIZINE HYDROCHLORIDE [Concomitant]

REACTIONS (1)
  - Instillation site pain [Recovered/Resolved]
